FAERS Safety Report 5900927-5 (Version None)
Quarter: 2008Q3

REPORT INFORMATION
  Report Type: 
  Country: None (occurrence: None)
  Receive Date: 20080929
  Receipt Date: 20080919
  Transmission Date: 20090109
  Serious: Yes (Hospitalization, Other)
  Sender: FDA-Public Use
  Company Number: PHHY2008JP20865

PATIENT

DRUGS (11)
  1. CYCLOSPORINE [Suspect]
     Indication: GRAFT VERSUS HOST DISEASE
     Dosage: UNK
     Route: 048
     Dates: start: 20011001, end: 20021201
  2. CYCLOSPORINE [Suspect]
     Indication: BONE MARROW TRANSPLANT
     Dosage: 150 MG/DAY
     Route: 048
     Dates: start: 20030201
  3. CYCLOSPORINE [Suspect]
     Dosage: 250 MG/DAY
     Route: 048
     Dates: start: 20030701
  4. PREDNISOLONE [Suspect]
     Dosage: UNK
     Route: 048
     Dates: start: 20011001, end: 20021201
  5. PREDNISOLONE [Suspect]
     Dosage: 30 MG
     Route: 048
     Dates: start: 20030201
  6. PREDNISOLONE [Suspect]
     Dosage: UNK
     Route: 048
  7. DIFLUPREDNATE [Suspect]
     Indication: BONE MARROW TRANSPLANT
     Dosage: UNK
     Route: 054
     Dates: start: 20030701
  8. AZULENE [Suspect]
     Indication: BONE MARROW TRANSPLANT
     Dosage: UNK
     Route: 054
     Dates: start: 20030701
  9. SODIUM ALGINATE [Suspect]
     Indication: BONE MARROW TRANSPLANT
     Dosage: UNK
     Route: 054
     Dates: start: 20030701
  10. TRETINOIN TOCOFERIL [Concomitant]
  11. TRAFERMIN [Concomitant]

REACTIONS (36)
  - ADENOVIRAL HAEMORRHAGIC CYSTITIS [None]
  - ALANINE AMINOTRANSFERASE INCREASED [None]
  - ANAEMIA [None]
  - BLISTER [None]
  - BLOOD ALBUMIN DECREASED [None]
  - BLOOD ALKALINE PHOSPHATASE INCREASED [None]
  - BLOOD COPPER DECREASED [None]
  - BLOOD IMMUNOGLOBULIN G DECREASED [None]
  - BLOOD IMMUNOGLOBULIN M DECREASED [None]
  - C-REACTIVE PROTEIN INCREASED [None]
  - CAPILLARY DISORDER [None]
  - CHRONIC GRAFT VERSUS HOST DISEASE [None]
  - DEPILATION [None]
  - ERYTHEMA [None]
  - GAMMA-GLUTAMYLTRANSFERASE INCREASED [None]
  - HAEMOGLOBIN DECREASED [None]
  - HAIR DISORDER [None]
  - HEPATIC ENZYME INCREASED [None]
  - IMMUNOGLOBULINS DECREASED [None]
  - LEUKODERMA [None]
  - LEUKOPENIA [None]
  - MORPHOEA [None]
  - NAIL DYSTROPHY [None]
  - PANCYTOPENIA [None]
  - PIGMENTATION DISORDER [None]
  - PROTEIN TOTAL DECREASED [None]
  - RED BLOOD CELL COUNT DECREASED [None]
  - SCAB [None]
  - SCLERODERMA [None]
  - SKIN ATROPHY [None]
  - SKIN DEPIGMENTATION [None]
  - SKIN EROSION [None]
  - SKIN EXFOLIATION [None]
  - SKIN ULCER [None]
  - THROMBOCYTOPENIA [None]
  - WEIGHT DECREASED [None]
